FAERS Safety Report 6055364-2 (Version None)
Quarter: 2009Q1

REPORT INFORMATION
  Report Type: 
  Country: None (occurrence: None)
  Receive Date: 20090128
  Receipt Date: 20090113
  Transmission Date: 20090719
  Serious: Yes (Hospitalization, Disabling, Other)
  Sender: FDA-Public Use
  Company Number: DE-PFIZER INC-2009155091

PATIENT

DRUGS (1)
  1. ZOLOFT [Suspect]
     Indication: DEPRESSION
     Dosage: 100 MG/DAY
     Route: 048
     Dates: start: 20010927, end: 20030101

REACTIONS (9)
  - CSF CELL COUNT INCREASED [None]
  - DEPRESSION [None]
  - DYSARTHRIA [None]
  - GAIT DISTURBANCE [None]
  - HEPATIC ENZYME INCREASED [None]
  - NERVOUS SYSTEM DISORDER [None]
  - OCCUPATIONAL EXPOSURE TO TOXIC AGENT [None]
  - SOMATOFORM DISORDER [None]
  - TREMOR [None]
